FAERS Safety Report 22652600 (Version 1)
Quarter: 2023Q2

REPORT INFORMATION
  Report Type: Spontaneous
  Country: EG (occurrence: EG)
  Receive Date: 20230629
  Receipt Date: 20230629
  Transmission Date: 20230722
  Serious: Yes (Hospitalization, Other)
  Sender: FDA-Public Use
  Company Number: EG-SA-SAC20230628000544

PATIENT
  Age: 74 Year
  Sex: Male
  Weight: 78 kg

DRUGS (11)
  1. ENOXAPARIN SODIUM [Suspect]
     Active Substance: ENOXAPARIN SODIUM
     Dosage: UNK
     Route: 058
     Dates: start: 20220216
  2. MEROPENEM [Suspect]
     Active Substance: MEROPENEM
     Indication: COVID-19
     Dosage: UNK, Q8H
     Route: 042
     Dates: start: 20220216
  3. MEROPENEM [Suspect]
     Active Substance: MEROPENEM
     Indication: Pulmonary oedema
  4. CONTROLOC [Concomitant]
     Active Substance: PANTOPRAZOLE SODIUM
     Dosage: UNK
     Route: 042
     Dates: start: 20220216
  5. REMDESIVIR [Concomitant]
     Active Substance: REMDESIVIR
     Dosage: UNK
     Route: 042
     Dates: start: 20220216
  6. ASPIRIN [Concomitant]
     Active Substance: ASPIRIN
     Dosage: UNK
     Route: 048
     Dates: start: 20220216
  7. METOPROLOL TARTRATE [Concomitant]
     Active Substance: METOPROLOL TARTRATE
     Dosage: UNK
     Route: 048
     Dates: start: 20220216
  8. PLAVIX [Concomitant]
     Active Substance: CLOPIDOGREL BISULFATE
     Dosage: UNK
     Route: 048
     Dates: start: 20220216
  9. RAMIPRIL [Concomitant]
     Active Substance: RAMIPRIL
     Dosage: UNK
     Route: 048
     Dates: start: 20220216
  10. ATOREZA [Concomitant]
     Dosage: UNK (10/40 MG)
     Route: 048
     Dates: start: 20220216
  11. ZYVOX [Concomitant]
     Active Substance: LINEZOLID
     Dosage: UNK, Q12H
     Route: 042
     Dates: start: 20220219

REACTIONS (3)
  - Thrombocytopenia [Unknown]
  - Blood lactic acid increased [Unknown]
  - Pneumonia [Unknown]
